FAERS Safety Report 7733939-X (Version None)
Quarter: 2011Q3

REPORT INFORMATION
  Report Type: 
  Country: None (occurrence: None)
  Receive Date: 20110907
  Receipt Date: 20110824
  Transmission Date: 20111222
  Serious: Yes (Life-Threatening, Other)
  Sender: FDA-Public Use
  Company Number: PL-CELGENEUS-129-50794-11073273

PATIENT
  Sex: Male

DRUGS (1)
  1. VIDAZA [Suspect]
     Indication: ACUTE MYELOID LEUKAEMIA
     Route: 065

REACTIONS (4)
  - PULMONARY MYCOSIS [None]
  - LIVER ABSCESS [None]
  - TERMINAL STATE [None]
  - RENAL FAILURE ACUTE [None]
